FAERS Safety Report 6111525-5 (Version None)
Quarter: 2009Q1

REPORT INFORMATION
  Report Type: 
  Country: None (occurrence: None)
  Receive Date: 20090310
  Receipt Date: 20090310
  Transmission Date: 20090719
  Serious: Yes (Death)
  Sender: FDA-Public Use
  Company Number: None

PATIENT
  Sex: Male
  Weight: 17 kg

DRUGS (12)
  1. BUSULFEX [Suspect]
     Indication: ACUTE MYELOID LEUKAEMIA
     Dosage: 13MG X 6; 16MG X 10 EVERY 6 HOURS IV
     Route: 042
     Dates: start: 20090115, end: 20090119
  2. BUSULFEX [Suspect]
     Indication: STEM CELL TRANSPLANT
     Dosage: 13MG X 6; 16MG X 10 EVERY 6 HOURS IV
     Route: 042
     Dates: start: 20090115, end: 20090119
  3. RABBIT ANTITHYMOCYTE GLOBULIN (THYMOGLOBULIN) [Suspect]
     Indication: ACUTE MYELOID LEUKAEMIA
     Dosage: 50 MG ONCE IV
     Route: 042
     Dates: start: 20090119
  4. RABBIT ANTITHYMOCYTE GLOBULIN (THYMOGLOBULIN) [Suspect]
     Indication: STEM CELL TRANSPLANT
     Dosage: 50 MG ONCE IV
     Route: 042
     Dates: start: 20090119
  5. CLORHEXADINE GLUCONATE [Concomitant]
  6. DIPHENHYDRAMINE HCL [Concomitant]
  7. MELPHALAN [Concomitant]
  8. METHYLPREDNISOLONE ACETATE [Concomitant]
  9. ONDANSETRON [Concomitant]
  10. PANTOPRAZOLE SODIUM [Concomitant]
  11. PHENYTOIN [Concomitant]
  12. BACTRIM [Concomitant]

REACTIONS (15)
  - BRAIN DEATH [None]
  - BRAIN HERNIATION [None]
  - BRAIN OEDEMA [None]
  - HALLUCINATION [None]
  - HYPERTONIA [None]
  - HYPONATRAEMIA [None]
  - HYPOTENSION [None]
  - INTENTIONAL SELF-INJURY [None]
  - MENTAL STATUS CHANGES [None]
  - PUPILLARY REFLEX IMPAIRED [None]
  - PYREXIA [None]
  - RESPIRATORY ARREST [None]
  - SCRATCH [None]
  - SCREAMING [None]
  - UNRESPONSIVE TO STIMULI [None]
